FAERS Safety Report 8984653 (Version 1)
Quarter: 2012Q4

REPORT INFORMATION
  Report Type: 
  Country: US (occurrence: US)
  Receive Date: 20121226
  Receipt Date: 20121226
  Transmission Date: 20130627
  Serious: Yes (Hospitalization)
  Sender: FDA-Public Use
  Company Number: US-BAYER-2012-134758

PATIENT
  Age: 21 Year
  Sex: Female
  Weight: 59 kg

DRUGS (6)
  1. YAZ [Suspect]
  2. BEYAZ [Suspect]
  3. MOTRIN [Concomitant]
     Indication: CHEST PAIN
  4. FLEXERIL [Concomitant]
     Indication: CHEST PAIN
  5. NORCO [Concomitant]
     Indication: CHEST PAIN
  6. IBUPROFEN [Concomitant]

REACTIONS (1)
  - Pulmonary embolism [None]
